FAERS Safety Report 7292529-6 (Version None)
Quarter: 2011Q1

REPORT INFORMATION
  Report Type: 
  Country: None (occurrence: None)
  Receive Date: 20110215
  Receipt Date: 20110202
  Transmission Date: 20110831
  Serious: Yes (Disabling)
  Sender: FDA-Public Use
  Company Number: ZA-RANBAXY-2011R5-41214

PATIENT

DRUGS (2)
  1. SERTRALINE HYDROCHLORIDE [Suspect]
     Indication: ANXIETY
  2. SERTRALINE HYDROCHLORIDE [Suspect]
     Indication: DEPRESSION
     Dosage: 100 MG, QD
     Route: 065
     Dates: start: 20100830, end: 20101221

REACTIONS (8)
  - AGGRESSION [None]
  - BEDRIDDEN [None]
  - DECREASED APPETITE [None]
  - MOOD SWINGS [None]
  - ANGER [None]
  - MENTAL IMPAIRMENT [None]
  - THERAPEUTIC RESPONSE DECREASED [None]
  - CRYING [None]
